FAERS Safety Report 20533638 (Version 1)
Quarter: 2022Q1

REPORT INFORMATION
  Report Type: Spontaneous
  Country: US (occurrence: US)
  Receive Date: 20220301
  Receipt Date: 20220301
  Transmission Date: 20220423
  Serious: No
  Sender: FDA-Public Use
  Company Number: US-PFIZER INC-2021576092

PATIENT
  Sex: Female

DRUGS (1)
  1. NITROGLYCERIN [Suspect]
     Active Substance: NITROGLYCERIN
     Indication: Oesophageal spasm
     Dosage: 0.4 MG
     Route: 060

REACTIONS (4)
  - Gait disturbance [Unknown]
  - Osteoarthritis [Unknown]
  - Obesity [Unknown]
  - Off label use [Unknown]
